FAERS Safety Report 7367626-7 (Version None)
Quarter: 2011Q1

REPORT INFORMATION
  Report Type: 
  Country: None (occurrence: None)
  Receive Date: 20110314
  Receipt Date: 20110228
  Transmission Date: 20110831
  Serious: Yes (Other)
  Sender: FDA-Public Use
  Company Number: 2011SP009214

PATIENT
  Age: 58 Year
  Sex: Female

DRUGS (3)
  1. SERETIDE [Concomitant]
  2. AERIUS (DESLORATADINE / 01398501 / ) [Suspect]
     Indication: URTICARIA
     Dosage: 1 DF;QD;
     Dates: start: 20110221
  3. COTAREG [Concomitant]

REACTIONS (3)
  - MYALGIA [None]
  - TENDONITIS [None]
  - TENOSYNOVITIS [None]
